FAERS Safety Report 9626749 (Version 1)
Quarter: 2013Q4

REPORT INFORMATION
  Report Type: Spontaneous
  Country: US (occurrence: US)
  Receive Date: 20131016
  Receipt Date: 20131016
  Transmission Date: 20140711
  Serious: Yes (Hospitalization, Other)
  Sender: FDA-Public Use
  Company Number: US-JNJFOC-20131005296

PATIENT
  Sex: Female

DRUGS (10)
  1. REMICADE [Suspect]
     Indication: PRODUCT USED FOR UNKNOWN INDICATION
     Route: 042
     Dates: start: 2012
  2. HUMIRA [Suspect]
     Indication: PSORIATIC ARTHROPATHY
     Dosage: 7-8 MONTHS AGO
     Route: 065
     Dates: start: 2013
  3. HUMIRA [Suspect]
     Indication: PSORIATIC ARTHROPATHY
     Dosage: START DATE: 10 YEARS PRIOR TO TIME OF REPORT
     Route: 065
     Dates: start: 2003, end: 2009
  4. KLONOPIN [Concomitant]
     Indication: STRESS
     Route: 065
  5. ZYPREXA [Concomitant]
     Indication: DEPRESSION
     Route: 065
  6. RESTORIL [Concomitant]
     Indication: INSOMNIA
     Route: 065
  7. SYNTHROID [Concomitant]
     Indication: HYPOTHYROIDISM
     Route: 065
  8. DIOVAN [Concomitant]
     Indication: BLOOD PRESSURE
     Route: 065
  9. APLENZIN [Concomitant]
     Indication: DRUG THERAPY
     Route: 065
  10. LAMOTRIGINE [Concomitant]
     Indication: DEPRESSION
     Route: 065

REACTIONS (4)
  - Lung neoplasm malignant [Recovered/Resolved]
  - Hypersensitivity [Unknown]
  - Fatigue [Recovered/Resolved]
  - Myalgia [Recovered/Resolved]
